FAERS Safety Report 8537270-4 (Version None)
Quarter: 2012Q3

REPORT INFORMATION
  Report Type: 
  Country: None (occurrence: None)
  Receive Date: 20120725
  Receipt Date: 20120718
  Transmission Date: 20120928
  Serious: Yes (Hospitalization, Other)
  Sender: FDA-Public Use
  Company Number: JP-PFIZER INC-2012160795

PATIENT
  Age: 74 Year
  Sex: Female

DRUGS (11)
  1. MAGMITT [Concomitant]
     Dosage: 990 MG (3 TABLETS) PER DAY
     Route: 048
  2. LYRICA [Suspect]
     Indication: PROCEDURAL PAIN
     Dosage: 75 MG DAILY
     Route: 048
     Dates: end: 20120703
  3. DIOVAN [Concomitant]
     Dosage: 120 MG (1.5 TABLETS) PER DAY
     Route: 048
  4. OPALMON [Concomitant]
     Dosage: 15 MICROGRAM (3 TABLETS) PER DAY
     Route: 048
  5. LIVALO [Concomitant]
     Dosage: 2 MG (1 TABLET) PER DAY
     Route: 048
  6. BISOPROLOL FUMARATE [Concomitant]
     Dosage: 5 MG (1TABLET) PER DAY
     Route: 048
  7. EPADEL [Concomitant]
     Dosage: 900 MG, 2X/DAY
     Route: 048
  8. TOLEDOMIN [Concomitant]
     Dosage: 50 MG (2 TABLETS) PER DAY
     Route: 048
  9. SELBEX [Concomitant]
     Dosage: 150 MG (3 DOSE FORM) PER DAY
     Route: 048
  10. LANSOPRAZOLE [Concomitant]
     Dosage: 15 MG (1 TABLET) PER DAY
     Route: 048
  11. ESTAZOLAM [Concomitant]
     Dosage: 2 MG (1 TABLET) PER DAY
     Route: 048

REACTIONS (3)
  - MALAISE [None]
  - BLOOD POTASSIUM DECREASED [None]
  - BLOOD SODIUM DECREASED [None]
